FAERS Safety Report 13197226 (Version 1)
Quarter: 2017Q1

REPORT INFORMATION
  Report Type: Spontaneous
  Country: US (occurrence: US)
  Receive Date: 20170208
  Receipt Date: 20170208
  Transmission Date: 20170428
  Serious: No
  Sender: FDA-Public Use
  Company Number: US-ASTRAZENECA-2017SE11359

PATIENT
  Age: 71 Year
  Sex: Female
  Weight: 95.3 kg

DRUGS (5)
  1. BISOPROLOL/HCT [Concomitant]
     Indication: BLOOD PRESSURE ABNORMAL
     Dosage: 5.6/2.5 MG, DAILY
     Route: 048
  2. LASIX [Concomitant]
     Active Substance: FUROSEMIDE
     Indication: DIURETIC THERAPY
     Route: 048
  3. POTASSIUM [Concomitant]
     Active Substance: POTASSIUM
     Route: 048
  4. ANASTOZOLE [Suspect]
     Active Substance: ANASTROZOLE
     Indication: BREAST CANCER
     Route: 048
     Dates: start: 201110, end: 201611
  5. LOSARTAN. [Concomitant]
     Active Substance: LOSARTAN
     Indication: BLOOD PRESSURE ABNORMAL
     Route: 048

REACTIONS (8)
  - Weight increased [Unknown]
  - Electrocardiogram abnormal [Recovering/Resolving]
  - Pleurisy [Unknown]
  - Headache [Unknown]
  - Joint swelling [Unknown]
  - Pulmonary hypertension [Recovering/Resolving]
  - Pneumonia [Unknown]
  - Hypertension [Unknown]

NARRATIVE: CASE EVENT DATE: 2011
